FAERS Safety Report 13863011 (Version 2)
Quarter: 2017Q3

REPORT INFORMATION
  Report Type: Spontaneous
  Country: US (occurrence: US)
  Receive Date: 20170814
  Receipt Date: 20170822
  Transmission Date: 20171127
  Serious: Yes (Death, Other)
  Sender: FDA-Public Use
  Company Number: US-AUROBINDO-AUR-APL-2017-38688

PATIENT
  Age: 17 Year
  Sex: Male

DRUGS (4)
  1. MINOCYCLINE [Suspect]
     Active Substance: MINOCYCLINE\MINOCYCLINE HYDROCHLORIDE
     Indication: FOLLICULITIS
     Route: 065
  2. PREDNISONE. [Concomitant]
     Active Substance: PREDNISONE
     Indication: PRODUCT USED FOR UNKNOWN INDICATION
  3. RITUXIMAB. [Concomitant]
     Active Substance: RITUXIMAB
     Indication: PRODUCT USED FOR UNKNOWN INDICATION
  4. IMMUNOGLOBULIN                     /00025201/ [Concomitant]
     Active Substance: HUMAN IMMUNOGLOBULIN G
     Indication: PRODUCT USED FOR UNKNOWN INDICATION

REACTIONS (16)
  - Multiple organ dysfunction syndrome [Fatal]
  - Drug reaction with eosinophilia and systemic symptoms [Unknown]
  - Renal failure [Unknown]
  - Septic shock [Unknown]
  - Face oedema [Unknown]
  - Gastrointestinal haemorrhage [Unknown]
  - Autoimmune thyroiditis [Unknown]
  - Type 1 diabetes mellitus [Unknown]
  - Thrombocytopenia [Unknown]
  - Dermatitis exfoliative [Unknown]
  - Leukocytosis [Unknown]
  - Eosinophilia [Unknown]
  - Pemphigoid [Unknown]
  - Dermatitis bullous [Unknown]
  - Arterial thrombosis [Unknown]
  - Transaminases increased [Unknown]
